FAERS Safety Report 8227502-4 (Version None)
Quarter: 2012Q1

REPORT INFORMATION
  Report Type: 
  Country: None (occurrence: None)
  Receive Date: 20120307
  Receipt Date: 20100610
  Transmission Date: 20120608
  Serious: No
  Sender: FDA-Public Use
  Company Number: PHHY2010US38393

PATIENT
  Sex: Male

DRUGS (1)
  1. AFINITOR [Suspect]
     Indication: RENAL CANCER
     Dosage: 10 MG, DAILY, ORAL
     Route: 048
     Dates: start: 20100421, end: 20100607

REACTIONS (7)
  - INCREASED UPPER AIRWAY SECRETION [None]
  - NAUSEA [None]
  - DIARRHOEA [None]
  - FATIGUE [None]
  - COUGH [None]
  - EPISTAXIS [None]
  - DYSGEUSIA [None]
